FAERS Safety Report 8151711-6 (Version None)
Quarter: 2012Q1

REPORT INFORMATION
  Report Type: 
  Country: None (occurrence: None)
  Receive Date: 20120221
  Receipt Date: 20120207
  Transmission Date: 20120608
  Serious: Yes (Other)
  Sender: FDA-Public Use
  Company Number: FR-AMGEN-FRASP2012009366

PATIENT
  Age: 46 Year
  Sex: Male

DRUGS (3)
  1. ETANERCEPT [Suspect]
     Indication: RHEUMATOID ARTHRITIS
  2. ETANERCEPT [Suspect]
     Indication: PSORIATIC ARTHROPATHY
     Dosage: 2 MONTHS
     Route: 065
  3. ETANERCEPT [Suspect]
     Indication: ANKYLOSING SPONDYLITIS

REACTIONS (1)
  - GRANULOMA [None]
